FAERS Safety Report 20720404 (Version 1)
Quarter: 2022Q2

REPORT INFORMATION
  Report Type: Spontaneous
  Country: US (occurrence: None)
  Receive Date: 20220415
  Receipt Date: 20220415
  Transmission Date: 20220721
  Serious: Yes (Hospitalization)
  Sender: FDA-Public Use
  Company Number: None

PATIENT

DRUGS (2)
  1. CIMZIA [Suspect]
     Active Substance: CERTOLIZUMAB PEGOL
  2. BUDESONIDE [Suspect]
     Active Substance: BUDESONIDE

REACTIONS (7)
  - Adverse reaction [None]
  - Insurance issue [None]
  - Illness [None]
  - COVID-19 [None]
  - Therapy cessation [None]
  - Oral pain [None]
  - Asthenia [None]
